FAERS Safety Report 6262859-5 (Version None)
Quarter: 2009Q3

REPORT INFORMATION
  Report Type: 
  Country: None (occurrence: None)
  Receive Date: 20090702
  Receipt Date: 20090623
  Transmission Date: 20100115
  Serious: Yes (Other)
  Sender: FDA-Public Use
  Company Number: AEUSA200900065

PATIENT
  Age: 71 Year
  Sex: Male

DRUGS (4)
  1. GAMUNEX [Suspect]
     Indication: IMMUNODEFICIENCY COMMON VARIABLE
     Dosage: 35 GM; 1X; IV
     Route: 042
     Dates: start: 20051101, end: 20080514
  2. ACETAMINOPHEN [Concomitant]
  3. DIPHENHYDRAMINE HYDROCHLORIDE [Concomitant]
  4. ALEVE [Concomitant]

REACTIONS (5)
  - DYSPNOEA [None]
  - PHARYNGEAL OEDEMA [None]
  - PRODUCT SUBSTITUTION ISSUE [None]
  - THROAT TIGHTNESS [None]
  - URTICARIA [None]
